FAERS Safety Report 20503971 (Version 2)
Quarter: 2024Q1

REPORT INFORMATION
  Report Type: Spontaneous
  Country: FR (occurrence: FR)
  Receive Date: 20220222
  Receipt Date: 20240307
  Transmission Date: 20240409
  Serious: Yes (Hospitalization, Other)
  Sender: FDA-Public Use
  Company Number: None

PATIENT
  Age: 72 Year
  Sex: Female
  Weight: 60 kg

DRUGS (8)
  1. KEYTRUDA [Suspect]
     Active Substance: PEMBROLIZUMAB
     Indication: Choroid melanoma
     Dosage: 1 CYCLICAL
     Route: 041
     Dates: start: 202007, end: 2020
  2. FOTEMUSTINE [Suspect]
     Active Substance: FOTEMUSTINE
     Indication: Choroid melanoma
     Dosage: UNK, Q 3W
     Route: 041
     Dates: start: 20210408, end: 20210902
  3. TEBENTAFUSP [Suspect]
     Active Substance: TEBENTAFUSP
     Indication: Choroid melanoma
     Dosage: 68 MICROGRAM, QW
     Route: 041
     Dates: start: 20211209, end: 20220201
  4. DACARBAZINE [Suspect]
     Active Substance: DACARBAZINE
     Indication: Choroid melanoma
     Dosage: 1620 MILLIGRAM, 1 CYCLICAL
     Route: 041
     Dates: start: 20210112, end: 20210226
  5. DORZOLAMIDE HYDROCHLORIDE\TIMOLOL MALEATE [Concomitant]
     Active Substance: DORZOLAMIDE HYDROCHLORIDE\TIMOLOL MALEATE
     Indication: Product used for unknown indication
     Dosage: UNK
  6. DORZOLAMIDE HYDROCHLORIDE\TIMOLOL MALEATE [Concomitant]
     Active Substance: DORZOLAMIDE HYDROCHLORIDE\TIMOLOL MALEATE
  7. LATANOPROST [Concomitant]
     Active Substance: LATANOPROST
     Indication: Product used for unknown indication
     Dosage: UNK
  8. LEVOTHYROXINE [Concomitant]
     Active Substance: LEVOTHYROXINE\LEVOTHYROXINE SODIUM
     Indication: Product used for unknown indication
     Dosage: UNK

REACTIONS (1)
  - Acute myeloid leukaemia [Not Recovered/Not Resolved]

NARRATIVE: CASE EVENT DATE: 20220201
